FAERS Safety Report 26146010 (Version 1)
Quarter: 2025Q4

REPORT INFORMATION
  Report Type: Spontaneous
  Country: GB (occurrence: GB)
  Receive Date: 20251211
  Receipt Date: 20251211
  Transmission Date: 20260117
  Serious: Yes (Other)
  Sender: ELI LILLY AND COMPANY
  Company Number: None

PATIENT
  Age: 66 Year
  Sex: Female
  Weight: 77 kg

DRUGS (2)
  1. SELPERCATINIB [Suspect]
     Active Substance: SELPERCATINIB
     Indication: Medullary thyroid cancer
     Dosage: 80 MG, BID
     Route: 065
     Dates: start: 2023
  2. RASAGILINE [Concomitant]
     Active Substance: RASAGILINE
     Indication: Product used for unknown indication
     Dosage: UNK UNK, UNKNOWN
     Route: 065
     Dates: start: 202508

REACTIONS (1)
  - Arthritis [Recovering/Resolving]

NARRATIVE: CASE EVENT DATE: 20250801
